FAERS Safety Report 4329759-9 (Version None)
Quarter: 2004Q2

REPORT INFORMATION
  Report Type: 
  Country: None (occurrence: None)
  Receive Date: 20040401
  Receipt Date: 20040318
  Transmission Date: 20050107
  Serious: Yes (Other)
  Sender: FDA-Public Use
  Company Number: JP-GLAXOSMITHKLINE-B0327857A

PATIENT

DRUGS (1)
  1. ALKERAN [Suspect]
     Indication: STEM CELL TRANSPLANT
     Route: 042

REACTIONS (1)
  - HYPOTHYROIDISM [None]
